FAERS Safety Report 9994933 (Version 1)
Quarter: 2014Q1

REPORT INFORMATION
  Report Type: Spontaneous
  Country: CA (occurrence: None)
  Receive Date: 20140306
  Receipt Date: 20140306
  Transmission Date: 20141002
  Serious: Yes (Hospitalization)
  Sender: FDA-Public Use
  Company Number: CA-014863

PATIENT
  Age: 74 Year
  Sex: Male

DRUGS (4)
  1. FIRMAGON /01764801/ (FIRMAGON) 80 MG (NOT SPECIFIED) [Suspect]
     Indication: PROSTATE CANCER
     Route: 058
     Dates: start: 20130505
  2. NOVO VENLAFAXINE [Concomitant]
  3. VESICARE [Concomitant]
  4. ANTICOAGULANT CIT PHOS DEX ADENINE [Concomitant]

REACTIONS (5)
  - Injection site haemorrhage [None]
  - Malaise [None]
  - Haematuria [None]
  - Knee arthroplasty [None]
  - Haemoglobin abnormal [None]
